FAERS Safety Report 11154821 (Version 3)
Quarter: 2017Q2

REPORT INFORMATION
  Report Type: Spontaneous
  Country: US (occurrence: US)
  Receive Date: 20150602
  Receipt Date: 20170602
  Transmission Date: 20170829
  Serious: No
  Sender: FDA-Public Use
  Company Number: US-NOVEN PHARMACEUTICALS, INC.-US2015000014

PATIENT

DRUGS (7)
  1. VITAMINS [Concomitant]
     Active Substance: VITAMINS
  2. IBUPROFEN. [Concomitant]
     Active Substance: IBUPROFEN
     Indication: PAIN
  3. DAYTRANA [Suspect]
     Active Substance: METHYLPHENIDATE
     Indication: PAIN
     Dosage: 30 MG, UNKNOWN
     Route: 062
     Dates: end: 201611
  4. DAYTRANA [Suspect]
     Active Substance: METHYLPHENIDATE
     Indication: PARALYSIS
  5. DAYTRANA [Suspect]
     Active Substance: METHYLPHENIDATE
     Indication: MOVEMENT DISORDER
  6. DAYTRANA [Suspect]
     Active Substance: METHYLPHENIDATE
     Indication: ATTENTION DEFICIT/HYPERACTIVITY DISORDER
     Dosage: 30 MG, UNK, EXPIRATION DATES: MAY-2015 AND JAN-2016
     Route: 062
     Dates: start: 2010
  7. METHYLPHENIDATE. [Concomitant]
     Active Substance: METHYLPHENIDATE
     Dosage: 10 MG, BID

REACTIONS (4)
  - Drug ineffective [Unknown]
  - Therapeutic response unexpected [Unknown]
  - Drug dose omission [Not Recovered/Not Resolved]
  - Off label use [Unknown]

NARRATIVE: CASE EVENT DATE: 2011
